FAERS Safety Report 17521926 (Version 2)
Quarter: 2020Q3

REPORT INFORMATION
  Report Type: Spontaneous
  Country: US (occurrence: US)
  Receive Date: 20200310
  Receipt Date: 20200910
  Transmission Date: 20201102
  Serious: No
  Sender: FDA-Public Use
  Company Number: US-FARMAPROD-201911-1747

PATIENT
  Sex: Male

DRUGS (1)
  1. OXERVATE [Suspect]
     Active Substance: CENEGERMIN-BKBJ
     Indication: NEUROTROPHIC KERATOPATHY
     Route: 047
     Dates: start: 20191014

REACTIONS (4)
  - Eye pain [Not Recovered/Not Resolved]
  - Eye infection [Unknown]
  - Visual impairment [Unknown]
  - Ocular hyperaemia [Unknown]
